FAERS Safety Report 5385019-9 (Version None)
Quarter: 2007Q3

REPORT INFORMATION
  Report Type: 
  Country: None (occurrence: None)
  Receive Date: 20070712
  Receipt Date: 20070703
  Transmission Date: 20080115
  Serious: Yes (Other)
  Sender: FDA-Public Use
  Company Number: PHMT2007CA01446

PATIENT
  Age: 59 Year
  Sex: Male

DRUGS (4)
  1. IMATINIB MESYLATE [Suspect]
     Indication: GASTROINTESTINAL STROMAL TUMOUR
     Dosage: 400 MG, QD
     Dates: start: 20021001, end: 20030801
  2. IMATINIB MESYLATE [Suspect]
     Dosage: 800 MG, QD
     Dates: start: 20030801
  3. IMATINIB MESYLATE [Suspect]
     Dosage: 600 MG, QD
     Dates: start: 20060301, end: 20060401
  4. IMATINIB MESYLATE [Suspect]
     Dosage: 800 MG , QD
     Dates: start: 20060401, end: 20060601

REACTIONS (25)
  - ANOREXIA [None]
  - ATRIAL FIBRILLATION [None]
  - DRUG INEFFECTIVE [None]
  - FATIGUE [None]
  - HAEMATOCRIT DECREASED [None]
  - HAEMOGLOBIN DECREASED [None]
  - HEPATIC EMBOLISATION [None]
  - LEUKOPENIA [None]
  - LIVER DISORDER [None]
  - LOCALISED INTRAABDOMINAL FLUID COLLECTION [None]
  - MALIGNANT NEOPLASM PROGRESSION [None]
  - METASTASES TO LIVER [None]
  - METASTASES TO LUNG [None]
  - METASTASES TO LYMPH NODES [None]
  - OBSTRUCTION [None]
  - OEDEMA [None]
  - PAIN [None]
  - PLATELET COUNT DECREASED [None]
  - PLEURAL EFFUSION [None]
  - PULMONARY EMBOLISM [None]
  - RASH [None]
  - RED BLOOD CELL COUNT DECREASED [None]
  - RED CELL DISTRIBUTION WIDTH INCREASED [None]
  - RENAL DISORDER [None]
  - SCROTAL SWELLING [None]
